FAERS Safety Report 14727992 (Version 3)
Quarter: 2018Q2

REPORT INFORMATION
  Report Type: Spontaneous
  Country: US (occurrence: US)
  Receive Date: 20180406
  Receipt Date: 20180419
  Transmission Date: 20180711
  Serious: Yes (Death, Life-Threatening, Hospitalization, Other)
  Sender: FDA-Public Use
  Company Number: US-UNITED THERAPEUTICS-UNT-2018-004082

PATIENT
  Age: 9 Month
  Sex: Male
  Weight: 3.99 kg

DRUGS (4)
  1. REMODULIN [Suspect]
     Active Substance: TREPROSTINIL
     Indication: PULMONARY HYPERTENSION
  2. TRACLEER [Concomitant]
     Active Substance: BOSENTAN
     Indication: PRODUCT USED FOR UNKNOWN INDICATION
     Route: 065
  3. REMODULIN [Suspect]
     Active Substance: TREPROSTINIL
     Indication: PULMONARY ARTERIAL HYPERTENSION
     Dosage: 0.0561 ?G/KG, CONTINUING
     Route: 058
     Dates: start: 20180314
  4. SILDENAFIL CITRATE. [Concomitant]
     Active Substance: SILDENAFIL CITRATE
     Indication: PRODUCT USED FOR UNKNOWN INDICATION
     Route: 065

REACTIONS (8)
  - Aspiration [Recovered/Resolved]
  - Sepsis [Fatal]
  - Oxygen saturation decreased [Recovering/Resolving]
  - Choking [Unknown]
  - Intestinal perforation [Fatal]
  - Respiratory disorder [Fatal]
  - Bronchial secretion retention [Unknown]
  - Retching [Unknown]

NARRATIVE: CASE EVENT DATE: 201803
